FAERS Safety Report 15153487 (Version 1)
Quarter: 2018Q3

REPORT INFORMATION
  Report Type: Spontaneous
  Country: FR (occurrence: FR)
  Receive Date: 20180717
  Receipt Date: 20180717
  Transmission Date: 20181010
  Serious: Yes (Death, Hospitalization)
  Sender: FDA-Public Use
  Company Number: PHHY2018FR039785

PATIENT
  Age: 79 Year

DRUGS (2)
  1. CLOBETASOL [Suspect]
     Active Substance: CLOBETASOL
     Indication: PEMPHIGOID
     Dosage: 30 G, QD
     Route: 061
  2. BETAMETHASONE. [Suspect]
     Active Substance: BETAMETHASONE
     Indication: PEMPHIGOID
     Route: 061

REACTIONS (2)
  - Septic shock [Fatal]
  - Necrotising fasciitis streptococcal [Fatal]
